FAERS Safety Report 22169267 (Version 1)
Quarter: 2023Q2

REPORT INFORMATION
  Report Type: Report from Study
  Country: US (occurrence: US)
  Receive Date: 20230404
  Receipt Date: 20230404
  Transmission Date: 20230721
  Serious: Yes (Other)
  Sender: FDA-Public Use
  Company Number: US-SA-SAC20230329000593

PATIENT
  Age: 63 Year
  Sex: Female
  Weight: 91 kg

DRUGS (7)
  1. ISATUXIMAB [Suspect]
     Active Substance: ISATUXIMAB
     Indication: Plasma cell myeloma
     Dosage: 10 MG N DAYS 1, 8, 15, 22, 29
     Route: 065
     Dates: start: 20220613, end: 20220613
  2. ISATUXIMAB [Suspect]
     Active Substance: ISATUXIMAB
     Dosage: 10 MG ON N DAYS 1 AND 15
     Dates: start: 20230221, end: 20230221
  3. BORTEZOMIB [Suspect]
     Active Substance: BORTEZOMIB
     Indication: Plasma cell myeloma
     Dosage: 1.3 MG/M2 N DAYS 1, 4, 8, 11, 22, 25, 29, AND 32
     Dates: start: 20220613, end: 20220613
  4. LENALIDOMIDE [Suspect]
     Active Substance: LENALIDOMIDE
     Indication: Plasma cell myeloma
     Dosage: 25 MG, DAYS 1-14 AND 22-35
     Dates: start: 20220613, end: 20220613
  5. LENALIDOMIDE [Suspect]
     Active Substance: LENALIDOMIDE
     Dosage: 25 MG ON DAYS 1-21
     Dates: start: 20230221, end: 20230221
  6. DEXAMETHASONE [Suspect]
     Active Substance: DEXAMETHASONE
     Indication: Plasma cell myeloma
     Dosage: 20 MG ON DAYS 1, 2, 4, 5, 8, 9, 11, 12, 15, 16, 22, 23, 25, 26, 29, 30, 32, AND 33
     Dates: start: 20220613, end: 20220613
  7. DEXAMETHASONE [Suspect]
     Active Substance: DEXAMETHASONE
     Dosage: 8 MG, ON DAYS 1 AND 15
     Dates: start: 20230221, end: 20230221

REACTIONS (1)
  - Squamous cell carcinoma [Unknown]

NARRATIVE: CASE EVENT DATE: 20230324
